FAERS Safety Report 13451976 (Version 1)
Quarter: 2017Q2

REPORT INFORMATION
  Report Type: Spontaneous
  Country: None (occurrence: US)
  Receive Date: 20170418
  Receipt Date: 20170418
  Transmission Date: 20170830
  Serious: No
  Sender: FDA-Public Use
  Company Number: None

PATIENT
  Age: 62 Year
  Sex: Male
  Weight: 104.9 kg

DRUGS (2)
  1. CYCLOPHOSPHAMIDE. [Suspect]
     Active Substance: CYCLOPHOSPHAMIDE
     Dates: end: 20051012
  2. MELPHALAN. [Suspect]
     Active Substance: MELPHALAN
     Dates: end: 20051026

REACTIONS (2)
  - Malignant neoplasm progression [None]
  - Squamous cell carcinoma [None]

NARRATIVE: CASE EVENT DATE: 20131203
